FAERS Safety Report 16248580 (Version 4)
Quarter: 2019Q3

REPORT INFORMATION
  Report Type: Spontaneous
  Country: PL (occurrence: PL)
  Receive Date: 20190429
  Receipt Date: 20190917
  Transmission Date: 20191004
  Serious: Yes (Congenital Anomaly, Other)
  Sender: FDA-Public Use
  Company Number: PL-AUROBINDO-AUR-APL-2019-023849

PATIENT
  Sex: Female
  Weight: 3.45 kg

DRUGS (3)
  1. TRAMADOL. [Suspect]
     Active Substance: TRAMADOL
     Indication: PRODUCT USED FOR UNKNOWN INDICATION
     Dosage: 750 MILLIGRAM, DAILY
     Route: 064
  2. PREGABALIN. [Suspect]
     Active Substance: PREGABALIN
     Dosage: UNK
     Route: 064
  3. PREGABALIN. [Suspect]
     Active Substance: PREGABALIN
     Indication: MIXED ANXIETY AND DEPRESSIVE DISORDER
     Dosage: 3000 MILLIGRAM, DAILY (FROM FIVE MONTHS)
     Route: 064

REACTIONS (6)
  - Meconium in amniotic fluid [Unknown]
  - Foetal exposure during pregnancy [Unknown]
  - Premature baby [Unknown]
  - Umbilical cord abnormality [Unknown]
  - Congenital pneumonia [Unknown]
  - Lung consolidation [Unknown]
